FAERS Safety Report 8830511 (Version 1)
Quarter: 2012Q4

REPORT INFORMATION
  Report Type: 
  Country: VE (occurrence: VE)
  Receive Date: 20121009
  Receipt Date: 20121009
  Transmission Date: 20130627
  Serious: Yes (Other)
  Sender: FDA-Public Use
  Company Number: VE-PFIZER INC-2012223776

PATIENT
  Age: 83 Year
  Sex: Female

DRUGS (1)
  1. LIPITOR [Suspect]
     Indication: CEREBROVASCULAR ACCIDENT
     Dosage: 20 mg, 2x/day
     Route: 048
     Dates: start: 2011

REACTIONS (1)
  - Cerebrovascular accident [Recovered/Resolved with Sequelae]
